FAERS Safety Report 15189411 (Version 1)
Quarter: 2018Q3

REPORT INFORMATION
  Report Type: Spontaneous
  Country: ES (occurrence: ES)
  Receive Date: 20180724
  Receipt Date: 20180724
  Transmission Date: 20181010
  Serious: Yes (Other)
  Sender: FDA-Public Use
  Company Number: ES-AUROBINDO-AUR-APL-2018-037009

PATIENT
  Age: 72 Year
  Sex: Female

DRUGS (1)
  1. CAPECITABINE. [Suspect]
     Active Substance: CAPECITABINE
     Indication: CARCINOID TUMOUR OF THE SMALL BOWEL
     Dosage: 500 MG , 1?0?1 X 14 DIAS EN CICLOS ()
     Route: 048
     Dates: start: 201604, end: 20170207

REACTIONS (1)
  - Refractory anaemia with an excess of blasts [Not Recovered/Not Resolved]

NARRATIVE: CASE EVENT DATE: 20170207
